FAERS Safety Report 7953869-8 (Version None)
Quarter: 2011Q4

REPORT INFORMATION
  Report Type: 
  Country: None (occurrence: None)
  Receive Date: 20111202
  Receipt Date: 20111122
  Transmission Date: 20120403
  Serious: Yes (Hospitalization)
  Sender: FDA-Public Use
  Company Number: US-JNJFOC-20111107032

PATIENT
  Sex: Male
  Weight: 49.3 kg

DRUGS (22)
  1. METHOTREXATE [Concomitant]
     Indication: CROHN'S DISEASE
  2. CHOLECALCIFEROL [Concomitant]
  3. BENZACLIN [Concomitant]
  4. OMEPRAZOLE [Concomitant]
  5. FOLIC ACID [Concomitant]
  6. IBUPROFEN [Concomitant]
  7. GROWTH HORMONE [Concomitant]
  8. DAPSONE [Concomitant]
  9. ADAPALENE [Concomitant]
  10. HUMIRA [Concomitant]
     Indication: CROHN'S DISEASE
  11. ASCORBIC ACID [Concomitant]
  12. CALCIUM W/MINERALS/VITAMIN D NOS [Concomitant]
  13. LETROZOLE [Concomitant]
  14. INFLIXIMAB [Suspect]
     Indication: INFLAMMATORY BOWEL DISEASE
     Route: 042
     Dates: start: 20090706, end: 20090817
  15. ACETAMINOPHEN [Concomitant]
  16. BENZOYL PEROXIDE [Concomitant]
  17. METRONIDAZOLE [Suspect]
     Indication: ANAL FISTULA
     Dates: end: 20110101
  18. MULTIVITAMIN WITH MINERALS [Concomitant]
  19. CIPROFLOXACIN [Concomitant]
     Indication: ANAL FISTULA
  20. PROBIOTICS [Concomitant]
  21. GABAPENTIN [Concomitant]
  22. LEVOTHYROXINE SODIUM [Concomitant]

REACTIONS (1)
  - NEUROTOXICITY [None]
